FAERS Safety Report 11687072 (Version 2)
Quarter: 2015Q4

REPORT INFORMATION
  Report Type: Spontaneous
  Country: US (occurrence: None)
  Receive Date: 20151030
  Receipt Date: 20151030
  Transmission Date: 20160304
  Serious: Yes (Other)
  Sender: FDA-Public Use
  Company Number: ADR-2014-02417

PATIENT
  Age: 55 Year
  Sex: Female

DRUGS (2)
  1. BACLOFEN INTRATHECAL 2000 MCG/ML [Suspect]
     Active Substance: BACLOFEN
     Indication: MUSCLE SPASTICITY
     Dosage: 1173.4 MCG/DAY
  2. MORPHINE INTRATHECAL 3MG/ML [Suspect]
     Active Substance: MORPHINE
     Dosage: 1.9532 MG/DAY

REACTIONS (3)
  - Decubitus ulcer [None]
  - Pocket erosion [None]
  - Implant site hypoaesthesia [None]
